FAERS Safety Report 9099777 (Version 1)
Quarter: 2013Q1

REPORT INFORMATION
  Report Type: Spontaneous
  Country: FR (occurrence: FR)
  Receive Date: 20130214
  Receipt Date: 20130214
  Transmission Date: 20140127
  Serious: Yes (Hospitalization)
  Sender: FDA-Public Use
  Company Number: FR-JNJFOC-20130203430

PATIENT
  Age: 92 Year
  Sex: Female

DRUGS (3)
  1. ZALDIAR [Suspect]
     Indication: ARTHRALGIA
     Route: 048
     Dates: end: 20121004
  2. CONTRAMAL [Suspect]
     Indication: ARTHRALGIA
     Route: 048
     Dates: end: 20121004
  3. AUGMENTIN [Concomitant]
     Indication: PRODUCT USED FOR UNKNOWN INDICATION
     Route: 048

REACTIONS (3)
  - Abdominal pain [Recovered/Resolved]
  - Vomiting [Recovered/Resolved]
  - Nausea [Recovered/Resolved]
